FAERS Safety Report 10921771 (Version 1)
Quarter: 2015Q1

REPORT INFORMATION
  Report Type: Spontaneous
  Country: GB (occurrence: GB)
  Receive Date: 20150317
  Receipt Date: 20150317
  Transmission Date: 20150721
  Serious: Yes (Other)
  Sender: FDA-Public Use
  Company Number: GB-WATSON-2015-04674

PATIENT
  Age: 48 Year
  Sex: Male

DRUGS (2)
  1. METRONIDAZOLE (UNKNOWN) [Suspect]
     Active Substance: BISMUTH SUBSALICYLATE\METRONIDAZOLE\TETRACYCLINE HYDROCHLORIDE
     Indication: POST PROCEDURAL SEPSIS
     Dosage: UNK
     Route: 042
  2. AMPHOTERICIN [Suspect]
     Active Substance: AMPHOTERICIN B
     Indication: POST PROCEDURAL SEPSIS
     Dosage: UNK
     Route: 042

REACTIONS (2)
  - Skin exfoliation [Recovered/Resolved]
  - Oral mucosal exfoliation [Recovered/Resolved]
